FAERS Safety Report 14355058 (Version 7)
Quarter: 2018Q2

REPORT INFORMATION
  Report Type: Report from Study
  Country: US (occurrence: US)
  Receive Date: 20180105
  Receipt Date: 20180516
  Transmission Date: 20180711
  Serious: Yes (Hospitalization)
  Sender: FDA-Public Use
  Company Number: US-ROCHE-2048863

PATIENT
  Age: 62 Year
  Sex: Female
  Weight: 57.6 kg

DRUGS (13)
  1. PACLITAXEL. [Suspect]
     Active Substance: PACLITAXEL
     Indication: OVARIAN CANCER
     Dosage: ON 13/DEC/2017, THE PATIENT RECEIVED THE MOST RECENT DOSE OF PACLITAXEL PRIOR TO ALL EVENTS, 276.6 M
     Route: 042
     Dates: start: 20171213
  2. ZYRTEC [Concomitant]
     Active Substance: CETIRIZINE HYDROCHLORIDE
     Indication: SEASONAL ALLERGY
     Route: 048
     Dates: start: 20160301
  3. CARBOPLATIN. [Suspect]
     Active Substance: CARBOPLATIN
     Indication: OVARIAN CANCER
     Dosage: ON 13/DEC/2017, THE PATIENT RECEIVED THE MOST RECENT DOSE OF CARBOPLATIN PRIOR TO ALL EVENTS, 506.4
     Route: 042
     Dates: start: 20171213
  4. TAMIFLU [Concomitant]
     Active Substance: OSELTAMIVIR PHOSPHATE
     Indication: PROPHYLAXIS
     Route: 065
     Dates: end: 20171226
  5. PRINZIDE [Concomitant]
     Active Substance: HYDROCHLOROTHIAZIDE\LISINOPRIL
     Indication: HYPERTENSION
     Dosage: 20-25 MG
     Route: 048
     Dates: start: 19910201
  6. ATEZOLIZUMAB. [Suspect]
     Active Substance: ATEZOLIZUMAB
     Indication: OVARIAN CANCER
     Dosage: DAY 1 OF EACH 21-DAY CYCLE FOR A TOTAL OF 6 CYCLES?ON 13/DEC/2017, THE PATIENT RECEIVED MOST RECENT
     Route: 042
     Dates: start: 20171213
  7. POTASSIUM CHLORIDE. [Concomitant]
     Active Substance: POTASSIUM CHLORIDE
     Route: 048
     Dates: start: 20150301
  8. POTASSIUM CHLORIDE. [Concomitant]
     Active Substance: POTASSIUM CHLORIDE
     Route: 065
     Dates: start: 20150305
  9. BEVACIZUMAB. [Suspect]
     Active Substance: BEVACIZUMAB
     Indication: OVARIAN CANCER
     Dosage: ON 13/DEC/2017, THE PATIENT RECEIVED THE MOST RECENT DOSE OF BEVACIZUMAB PRIOR TO ALL EVENTS, 1200 M
     Route: 042
     Dates: start: 20171213
  10. ZOCOR [Concomitant]
     Active Substance: SIMVASTATIN
     Indication: HYPERLIPIDAEMIA
     Route: 048
     Dates: start: 20130601
  11. VITAMIN C [Concomitant]
     Active Substance: ASCORBIC ACID
     Route: 048
     Dates: start: 20130501
  12. DECADRON [Concomitant]
     Active Substance: DEXAMETHASONE
     Route: 048
     Dates: start: 20171213
  13. CALCIUM CARBONATE. [Concomitant]
     Active Substance: CALCIUM CARBONATE
     Route: 048
     Dates: start: 20170301

REACTIONS (1)
  - Infusion related reaction [Recovered/Resolved]

NARRATIVE: CASE EVENT DATE: 20171224
